FAERS Safety Report 7680420-2 (Version None)
Quarter: 2011Q3

REPORT INFORMATION
  Report Type: 
  Country: None (occurrence: None)
  Receive Date: 20110812
  Receipt Date: 20110809
  Transmission Date: 20111222
  Serious: Yes (Hospitalization)
  Sender: FDA-Public Use
  Company Number: GB-PFIZER INC-2011100659

PATIENT
  Age: 38 Year
  Sex: Female

DRUGS (6)
  1. ANIDULAFUNGIN [Suspect]
     Indication: LIVER DISORDER
     Dosage: 100 MG, 1X/DAY
     Dates: start: 20091104, end: 20091117
  2. MEROPENEM [Concomitant]
     Indication: BACTERIAL INFECTION
     Dosage: UNK
     Route: 042
     Dates: start: 20091101
  3. TACROLIMUS [Concomitant]
     Indication: IMMUNOSUPPRESSION
     Dosage: UNK
     Route: 048
     Dates: start: 20091103
  4. PREDNISOLONE [Concomitant]
     Indication: IMMUNOSUPPRESSION
     Dosage: UNK
     Route: 048
     Dates: start: 20091103
  5. VALGANCICLOVIR [Concomitant]
     Indication: CYTOMEGALOVIRUS INFECTION
     Dosage: UNK
     Route: 048
     Dates: start: 20091103
  6. VANCOMYCIN [Concomitant]
     Indication: SEPSIS
     Dosage: UNK
     Route: 042
     Dates: start: 20091101

REACTIONS (1)
  - FUNGAL INFECTION [None]
